FAERS Safety Report 4359495-4 (Version None)
Quarter: 2004Q2

REPORT INFORMATION
  Report Type: 
  Country: None (occurrence: None)
  Receive Date: 20040512
  Receipt Date: 20040427
  Transmission Date: 20050107
  Serious: Yes (Other)
  Sender: FDA-Public Use
  Company Number: USA040258566

PATIENT
  Age: 43 Year
  Sex: Female

DRUGS (37)
  1. FORTEO [Suspect]
     Indication: OSTEOPOROSIS
     Dosage: 20 UG/1 DAY
     Dates: start: 20040204, end: 20040204
  2. VERAPAMIL [Concomitant]
  3. BENADRYL [Concomitant]
  4. PREDNISONE [Concomitant]
  5. LIPITOR [Concomitant]
  6. ASPIRIN [Concomitant]
  7. PROVENTIL [Concomitant]
  8. INTAL [Concomitant]
  9. PULMICORT [Concomitant]
  10. VENTOLIN [Concomitant]
  11. GUAIFENESIN [Concomitant]
  12. CLARITIN [Concomitant]
  13. PRILOSEC [Concomitant]
  14. CARAFATE [Concomitant]
  15. MYLANTA [Concomitant]
  16. MONISTAT [Concomitant]
  17. MYCOSTATIN [Concomitant]
  18. ZOLOFT [Concomitant]
  19. VALIUM [Concomitant]
  20. DILAUDID [Concomitant]
  21. ZOFRAN [Concomitant]
  22. FENTANYL [Concomitant]
  23. RISPERDAL [Concomitant]
  24. VITAMIN B12 FOR INJECTION (CYANOCOBALAMIN) [Concomitant]
  25. CALTRATE (CALCIUM CARBONATE) [Concomitant]
  26. IRON [Concomitant]
  27. VITAMIN D [Concomitant]
  28. FOLIC ACID [Concomitant]
  29. ADDERALL 10 [Concomitant]
  30. CROLOM (CROMOGLICATE SODIUM) [Concomitant]
  31. AQUASITE [Concomitant]
  32. NASACORT [Concomitant]
  33. OCEAN MIST (SODIUM CHLORIDE) [Concomitant]
  34. NYSTATIN [Concomitant]
  35. ZANTAC [Concomitant]
  36. VITAMIN E [Concomitant]
  37. BOOST [Concomitant]

REACTIONS (10)
  - BLOOD GLUCOSE INCREASED [None]
  - CARDIAC FLUTTER [None]
  - DIZZINESS [None]
  - DRUG HYPERSENSITIVITY [None]
  - DYSPNOEA [None]
  - FEELING ABNORMAL [None]
  - FEELING HOT [None]
  - HEART RATE INCREASED [None]
  - INJECTION SITE URTICARIA [None]
  - URTICARIA [None]
